FAERS Safety Report 9230980 (Version 1)
Quarter: 2013Q2

REPORT INFORMATION
  Report Type: Spontaneous
  Country: US (occurrence: US)
  Receive Date: 20130415
  Receipt Date: 20130415
  Transmission Date: 20140414
  Serious: Yes (Other)
  Sender: FDA-Public Use
  Company Number: US-BANPHARM-20131141

PATIENT
  Age: 49 Year
  Sex: Female
  Weight: 149.68 kg

DRUGS (5)
  1. ALEVE LIQUID GELS 220 MG [Suspect]
     Dosage: 2 DF, QD,
     Route: 048
  2. ALEVE TABLETS [Suspect]
     Dosage: 2 DF, QD,
     Route: 048
  3. ALEVE GEL CAPS [Suspect]
     Dosage: 2 DF, QD,
     Route: 048
  4. ALEVE [Suspect]
     Dosage: 2 DF, QD,
     Route: 048
  5. DEXILANT [Concomitant]

REACTIONS (2)
  - Amnesia [Unknown]
  - Incorrect drug administration duration [Unknown]
